FAERS Safety Report 9387781 (Version 1)
Quarter: 2013Q3

REPORT INFORMATION
  Report Type: Spontaneous
  Country: GB (occurrence: None)
  Receive Date: 20130701
  Receipt Date: 20130701
  Transmission Date: 20140515
  Serious: Yes (Death, Other)
  Sender: FDA-Public Use
  Company Number: GER/UKI/13/0030208

PATIENT
  Age: 46 Year
  Sex: Male
  Weight: 111.9 kg

DRUGS (5)
  1. SERTRALINE(SERTRALINE) [Suspect]
     Indication: DEPRESSION
     Route: 048
     Dates: start: 2000
  2. ZAPONEX [Suspect]
     Indication: SCHIZOPHRENIA, PARANOID TYPE
     Route: 048
     Dates: start: 20090626, end: 20121116
  3. AMISULPRIDE(AMISULPRIDE) [Concomitant]
  4. SIMVASTATIN(SIMVASTATIN) [Concomitant]
  5. VALPROATE SOIDUM(VALPROATE SODIUM) [Concomitant]

REACTIONS (9)
  - Arteriosclerosis coronary artery [None]
  - Emphysema [None]
  - Completed suicide [None]
  - Drowning [None]
  - Intentional overdose [None]
  - Coronary artery stenosis [None]
  - Brain oedema [None]
  - Arteriosclerosis [None]
  - Blood alcohol increased [None]
